FAERS Safety Report 16687479 (Version 1)
Quarter: 2019Q3

REPORT INFORMATION
  Report Type: Spontaneous
  Country: US (occurrence: US)
  Receive Date: 20190624
  Receipt Date: 20190624
  Transmission Date: 20191004
  Serious: No
  Sender: FDA-Public Use
  Company Number: None

PATIENT
  Age: 53 Year
  Sex: Female
  Weight: 84.82 kg

DRUGS (2)
  1. BUPRENORPHINE 10MCG/HR #12 [Suspect]
     Active Substance: BUPRENORPHINE
     Indication: MIGRAINE
  2. BUPRENORPHINE 10MCG/HR #12 [Suspect]
     Active Substance: BUPRENORPHINE
     Indication: NECK PAIN
     Dosage: ?          OTHER DOSE:10MCG/HR;OTHER ROUTE:PATCH?
     Dates: start: 20190121

REACTIONS (3)
  - Rash [None]
  - Erythema [None]
  - Blister [None]
